FAERS Safety Report 18588704 (Version 1)
Quarter: 2020Q4

REPORT INFORMATION
  Report Type: Spontaneous
  Country: US (occurrence: US)
  Receive Date: 20201207
  Receipt Date: 20201207
  Transmission Date: 20210114
  Serious: No
  Sender: FDA-Public Use
  Company Number: US-JNJFOC-20201204803

PATIENT
  Age: 4 Decade
  Sex: Female
  Weight: 204.3 kg

DRUGS (2)
  1. STELARA [Suspect]
     Active Substance: USTEKINUMAB
     Indication: PROCTITIS ULCERATIVE
  2. STELARA [Suspect]
     Active Substance: USTEKINUMAB
     Indication: CROHN^S DISEASE
     Route: 058
     Dates: start: 202001

REACTIONS (6)
  - C-reactive protein increased [Unknown]
  - Off label use [Unknown]
  - Faecal calprotectin increased [Unknown]
  - Incorrect dose administered [Unknown]
  - Frequent bowel movements [Unknown]
  - Drug level decreased [Unknown]

NARRATIVE: CASE EVENT DATE: 2020
